FAERS Safety Report 11096522 (Version 1)
Quarter: 2015Q2

REPORT INFORMATION
  Report Type: Spontaneous
  Country: DE (occurrence: DE)
  Receive Date: 20150507
  Receipt Date: 20150507
  Transmission Date: 20150821
  Serious: Yes (Congenital Anomaly)
  Sender: FDA-Public Use
  Company Number: DE-SA-2015SA035334

PATIENT
  Sex: Female
  Weight: 2.91 kg

DRUGS (1)
  1. MYOZYME [Suspect]
     Active Substance: ALGLUCOSIDASE ALFA
     Route: 064

REACTIONS (2)
  - Atrial septal defect [Not Recovered/Not Resolved]
  - Exposure during pregnancy [Unknown]
